FAERS Safety Report 6648145-X (Version None)
Quarter: 2010Q1

REPORT INFORMATION
  Report Type: 
  Country: None (occurrence: None)
  Receive Date: 20100324
  Receipt Date: 20100315
  Transmission Date: 20100710
  Serious: Yes (Other)
  Sender: FDA-Public Use
  Company Number: US-JNJFOC-20100304636

PATIENT
  Sex: Female

DRUGS (11)
  1. REMICADE [Suspect]
     Indication: COLITIS ULCERATIVE
     Route: 042
  2. LIALDA [Concomitant]
  3. MULTAQ [Concomitant]
  4. PREDNISONE [Concomitant]
  5. PROTONIX [Concomitant]
  6. QUESTRAN [Concomitant]
  7. CARAFATE [Concomitant]
  8. FLONASE [Concomitant]
  9. METOPROLOL [Concomitant]
  10. ASACOL [Concomitant]
  11. TRAZODONE HCL [Concomitant]

REACTIONS (1)
  - HERPES OESOPHAGITIS [None]
